FAERS Safety Report 10454332 (Version 1)
Quarter: 2014Q3

REPORT INFORMATION
  Report Type: Spontaneous
  Country: US (occurrence: US)
  Receive Date: 20140915
  Receipt Date: 20140915
  Transmission Date: 20150326
  Serious: Yes (Congenital Anomaly)
  Sender: FDA-Public Use
  Company Number: US-TEVA-508282USA

PATIENT
  Age: 19 Year
  Sex: Female

DRUGS (1)
  1. KARIVA [Suspect]
     Active Substance: DESOGESTREL\ETHINYL ESTRADIOL
     Indication: CONTRACEPTION

REACTIONS (3)
  - May-Thurner syndrome [Not Recovered/Not Resolved]
  - Peripheral swelling [Unknown]
  - Extrinsic iliac vein compression [Not Recovered/Not Resolved]
